FAERS Safety Report 11876070 (Version 1)
Quarter: 2015Q4

REPORT INFORMATION
  Report Type: Report from Study
  Country: US (occurrence: US)
  Receive Date: 20151229
  Receipt Date: 20151229
  Transmission Date: 20160305
  Serious: Yes (Hospitalization, Other)
  Sender: FDA-Public Use
  Company Number: US-ABBVIE-15K-163-1383872-00

PATIENT
  Age: 52 Year
  Sex: Female

DRUGS (1)
  1. HUMIRA [Suspect]
     Active Substance: ADALIMUMAB
     Indication: RHEUMATOID ARTHRITIS
     Route: 058
     Dates: start: 20150316

REACTIONS (5)
  - Neck surgery [Unknown]
  - Choking [Unknown]
  - Cough [Unknown]
  - Hypophagia [Unknown]
  - Nerve compression [Unknown]

NARRATIVE: CASE EVENT DATE: 2015
